FAERS Safety Report 20044990 (Version 1)
Quarter: 2021Q4

REPORT INFORMATION
  Report Type: Spontaneous
  Country: JP (occurrence: None)
  Receive Date: 20211108
  Receipt Date: 20211108
  Transmission Date: 20220304
  Serious: Yes (Other)
  Sender: FDA-Public Use
  Company Number: 2021A799244

PATIENT
  Age: 20 Year
  Sex: Male

DRUGS (3)
  1. SEROQUEL [Suspect]
     Active Substance: QUETIAPINE FUMARATE
     Indication: Product used for unknown indication
     Dosage: 400 MG/DAY, UNKNOWN FREQ.
     Route: 048
  2. MOCLOBEMIDE [Suspect]
     Active Substance: MOCLOBEMIDE
     Indication: Product used for unknown indication
     Dosage: 60000 MG/DAY, UNKNOWN FREQ.
     Route: 048
  3. ESCITALOPRAM [Suspect]
     Active Substance: ESCITALOPRAM OXALATE
     Indication: Product used for unknown indication
     Dosage: 10 MG/DAY, UNKNOWN FREQ.
     Route: 048

REACTIONS (1)
  - Pneumonia aspiration [Recovered/Resolved]
